FAERS Safety Report 18328549 (Version 2)
Quarter: 2020Q4

REPORT INFORMATION
  Report Type: Spontaneous
  Country: RU (occurrence: RU)
  Receive Date: 20200930
  Receipt Date: 20201014
  Transmission Date: 20210113
  Serious: Yes (Other)
  Sender: FDA-Public Use
  Company Number: NVSC2020RU263709

PATIENT
  Age: 59 Year

DRUGS (1)
  1. DABRAFENIB [Suspect]
     Active Substance: DABRAFENIB
     Indication: MALIGNANT MELANOMA
     Dosage: UNK
     Route: 065
     Dates: start: 201905

REACTIONS (6)
  - Ascites [Unknown]
  - Portal vein thrombosis [Unknown]
  - Malignant peritoneal neoplasm [Unknown]
  - Vertebral column mass [Unknown]
  - Lymphadenopathy [Unknown]
  - Abdominal distension [Unknown]

NARRATIVE: CASE EVENT DATE: 20190729
